FAERS Safety Report 12741990 (Version 1)
Quarter: 2016Q3

REPORT INFORMATION
  Report Type: Spontaneous
  Country: DE (occurrence: DE)
  Receive Date: 20160914
  Receipt Date: 20160914
  Transmission Date: 20161109
  Serious: Yes (Death, Life-Threatening)
  Sender: FDA-Public Use
  Company Number: DE-PACIRA PHARMACEUTICALS, INC.-2016DEPDE00681

PATIENT
  Age: 55 Year
  Sex: Female

DRUGS (15)
  1. CARBOPLATIN. [Suspect]
     Active Substance: CARBOPLATIN
     Dosage: UNK UNK, UNK
     Route: 042
  2. DEPOCYT [Suspect]
     Active Substance: CYTARABINE
     Indication: METASTASES TO SPINE
     Dosage: UNK UNK, UNK
     Route: 037
  3. GEMCITABINE [Suspect]
     Active Substance: GEMCITABINE\GEMCITABINE HYDROCHLORIDE
     Indication: TRIPLE NEGATIVE BREAST CANCER
     Dosage: UNK UNK, UNK
     Route: 042
     Dates: start: 20151217, end: 20151217
  4. DEPOCYT [Suspect]
     Active Substance: CYTARABINE
     Indication: TRIPLE NEGATIVE BREAST CANCER
     Dosage: UNK UNK, UNK
     Route: 037
     Dates: start: 20151210, end: 20151210
  5. DEPOCYT [Suspect]
     Active Substance: CYTARABINE
     Dosage: UNK UNK, UNK
     Route: 037
  6. CARBOPLATIN. [Suspect]
     Active Substance: CARBOPLATIN
     Indication: METASTASES TO MENINGES
     Dosage: UNK UNK, UNK
     Route: 042
  7. OXALIPLATIN. [Concomitant]
     Active Substance: OXALIPLATIN
  8. DEPOCYT [Suspect]
     Active Substance: CYTARABINE
     Indication: METASTASES TO MENINGES
     Dosage: UNK UNK, UNK
     Route: 037
     Dates: start: 20160114, end: 20160114
  9. GEMCITABINE [Suspect]
     Active Substance: GEMCITABINE\GEMCITABINE HYDROCHLORIDE
     Indication: METASTASES TO SPINE
     Dosage: UNK UNK, UNK
     Route: 065
  10. GEMCITABINE [Suspect]
     Active Substance: GEMCITABINE\GEMCITABINE HYDROCHLORIDE
     Dosage: UNK UNK, UNK
     Route: 065
  11. GEMCITABINE [Suspect]
     Active Substance: GEMCITABINE\GEMCITABINE HYDROCHLORIDE
     Indication: METASTASES TO MENINGES
     Dosage: UNK UNK, UNK
     Route: 065
  12. CARBOPLATIN. [Suspect]
     Active Substance: CARBOPLATIN
     Indication: METASTASES TO SPINE
     Dosage: UNK UNK, UNK
     Route: 042
  13. DEPOCYT [Suspect]
     Active Substance: CYTARABINE
     Dosage: UNK UNK, UNK
     Route: 037
  14. CARBOPLATIN. [Suspect]
     Active Substance: CARBOPLATIN
     Indication: TRIPLE NEGATIVE BREAST CANCER
     Dosage: UNK UNK, UNK
     Route: 042
     Dates: start: 20151217, end: 20151217
  15. CISPLATIN. [Concomitant]
     Active Substance: CISPLATIN

REACTIONS (2)
  - Spinal cord oedema [Recovering/Resolving]
  - Disease progression [Fatal]

NARRATIVE: CASE EVENT DATE: 201601
